FAERS Safety Report 12157882 (Version 1)
Quarter: 2016Q1

REPORT INFORMATION
  Report Type: Spontaneous
  Country: US (occurrence: US)
  Receive Date: 20160308
  Receipt Date: 20160308
  Transmission Date: 20160526
  Serious: Yes (Hospitalization)
  Sender: FDA-Public Use
  Company Number: US-JNJFOC-20150117236

PATIENT
  Age: 73 Year
  Sex: Male

DRUGS (14)
  1. PREDNISONE. [Concomitant]
     Active Substance: PREDNISONE
  2. DILTIAZEM [Concomitant]
     Active Substance: DILTIAZEM
  3. LISINOPRIL. [Concomitant]
     Active Substance: LISINOPRIL
  4. SULFASALAZINE. [Concomitant]
     Active Substance: SULFASALAZINE
  5. IMBRUVICA [Suspect]
     Active Substance: IBRUTINIB
     Indication: CHRONIC LYMPHOCYTIC LEUKAEMIA
     Route: 048
     Dates: start: 20140926, end: 201411
  6. ZOLPIDEM [Concomitant]
     Active Substance: ZOLPIDEM\ZOLPIDEM TARTRATE
  7. GABAPENTIN. [Concomitant]
     Active Substance: GABAPENTIN
  8. SIMVASTATIN. [Concomitant]
     Active Substance: SIMVASTATIN
  9. LORAZEPAM. [Concomitant]
     Active Substance: LORAZEPAM
  10. IMBRUVICA [Suspect]
     Active Substance: IBRUTINIB
     Indication: CHRONIC LYMPHOCYTIC LEUKAEMIA
     Route: 048
     Dates: start: 20141202
  11. IMBRUVICA [Suspect]
     Active Substance: IBRUTINIB
     Indication: CHRONIC LYMPHOCYTIC LEUKAEMIA
     Route: 048
     Dates: start: 20141126, end: 20141127
  12. TAMSULOSIN [Concomitant]
     Active Substance: TAMSULOSIN
  13. PROAIR(SALBUTAMOL SULFATE) [Concomitant]
     Route: 055
  14. METOPROLOL. [Concomitant]
     Active Substance: METOPROLOL

REACTIONS (1)
  - Meningitis aspergillus [Recovering/Resolving]

NARRATIVE: CASE EVENT DATE: 20141114
